FAERS Safety Report 9616991 (Version 2)
Quarter: 2013Q4

REPORT INFORMATION
  Report Type: Report from Study
  Country: US (occurrence: US)
  Receive Date: 20131011
  Receipt Date: 20131017
  Transmission Date: 20140711
  Serious: Yes (Death, Other)
  Sender: FDA-Public Use
  Company Number: US-ACTELION-A-US2013-89754

PATIENT
  Age: 79 Year
  Sex: Female

DRUGS (1)
  1. VENTAVIS [Suspect]
     Indication: COR PULMONALE CHRONIC
     Dosage: UNK
     Route: 055
     Dates: end: 20130820

REACTIONS (5)
  - Death [Fatal]
  - Pulmonary mass [Unknown]
  - Cor pulmonale chronic [Unknown]
  - Shock [Unknown]
  - Right ventricular failure [Unknown]
